FAERS Safety Report 17919707 (Version 2)
Quarter: 2020Q2

REPORT INFORMATION
  Report Type: Spontaneous
  Country: ML (occurrence: ML)
  Receive Date: 20200619
  Receipt Date: 20200626
  Transmission Date: 20200714
  Serious: Yes (Death, Hospitalization, Other)
  Sender: FDA-Public Use
  Company Number: NVSC2020ML170570

PATIENT
  Age: 43 Year
  Sex: Male
  Weight: 73 kg

DRUGS (2)
  1. GLIVEC [Suspect]
     Active Substance: IMATINIB MESYLATE
     Dosage: 600 MG
     Route: 048
     Dates: start: 20191128, end: 20200606
  2. GLIVEC [Suspect]
     Active Substance: IMATINIB MESYLATE
     Indication: CHRONIC MYELOID LEUKAEMIA
     Dosage: 600 MG
     Route: 048
     Dates: start: 20191128, end: 20200606

REACTIONS (11)
  - Thrombocytopenia [Not Recovered/Not Resolved]
  - Acute lymphocytic leukaemia [Not Recovered/Not Resolved]
  - Malignant neoplasm progression [Not Recovered/Not Resolved]
  - Altered state of consciousness [Fatal]
  - Pallor [Fatal]
  - Anaemia [Not Recovered/Not Resolved]
  - Leukocytosis [Not Recovered/Not Resolved]
  - Bone pain [Not Recovered/Not Resolved]
  - Neutropenia [Not Recovered/Not Resolved]
  - Chronic myeloid leukaemia [Not Recovered/Not Resolved]
  - Gingival bleeding [Fatal]

NARRATIVE: CASE EVENT DATE: 20200612
